FAERS Safety Report 20545276 (Version 2)
Quarter: 2022Q2

REPORT INFORMATION
  Report Type: Report from Study
  Country: US (occurrence: US)
  Receive Date: 20220303
  Receipt Date: 20220617
  Transmission Date: 20220721
  Serious: Yes (Hospitalization, Other)
  Sender: FDA-Public Use
  Company Number: US-Ipsen Biopharmaceuticals, Inc.-2022-05396

PATIENT
  Age: 61 Year
  Sex: Female

DRUGS (1)
  1. SOMATULINE DEPOT [Suspect]
     Active Substance: LANREOTIDE ACETATE
     Indication: Acromegaly
     Dosage: 60MG/0.2ML
     Route: 058
     Dates: start: 2019

REACTIONS (7)
  - Hip deformity [Recovering/Resolving]
  - Oedema peripheral [Recovering/Resolving]
  - Thrombosis [Recovering/Resolving]
  - COVID-19 [Recovered/Resolved]
  - Alopecia [Recovering/Resolving]
  - Fatigue [Recovering/Resolving]
  - Off label use [Unknown]

NARRATIVE: CASE EVENT DATE: 20220101
